FAERS Safety Report 7578723-5 (Version None)
Quarter: 2011Q2

REPORT INFORMATION
  Report Type: 
  Country: None (occurrence: None)
  Receive Date: 20110628
  Receipt Date: 20110616
  Transmission Date: 20111010
  Serious: Yes (Death)
  Sender: FDA-Public Use
  Company Number: CA-JNJFOC-20110307396

PATIENT
  Sex: Male

DRUGS (1)
  1. REMICADE [Suspect]
     Indication: CROHN'S DISEASE
     Route: 042
     Dates: start: 20090122

REACTIONS (4)
  - CEREBROVASCULAR ACCIDENT [None]
  - AGITATION [None]
  - LEG AMPUTATION [None]
  - CONFUSIONAL STATE [None]
